FAERS Safety Report 11932766 (Version 1)
Quarter: 2016Q1

REPORT INFORMATION
  Report Type: Spontaneous
  Country: TW (occurrence: TW)
  Receive Date: 20160120
  Receipt Date: 20160120
  Transmission Date: 20160526
  Serious: Yes (Other)
  Sender: FDA-Public Use
  Company Number: PHHY2016TW004488

PATIENT
  Age: 83 Year
  Sex: Female

DRUGS (2)
  1. MABTHERA [Suspect]
     Active Substance: RITUXIMAB
     Indication: PEMPHIGOID
     Dosage: 500 MG, FOUR WEEKLY
     Route: 041
  2. PREDNISOLONE. [Suspect]
     Active Substance: PREDNISOLONE
     Indication: PEMPHIGOID
     Dosage: 0.5 MG/KG, QD
     Route: 065

REACTIONS (3)
  - Urinary tract infection [Unknown]
  - Drug effect incomplete [Unknown]
  - Cellulitis [Unknown]
